FAERS Safety Report 7356043-1 (Version None)
Quarter: 2011Q1

REPORT INFORMATION
  Report Type: 
  Country: None (occurrence: None)
  Receive Date: 20110316
  Receipt Date: 20110302
  Transmission Date: 20110831
  Serious: Yes (Hospitalization)
  Sender: FDA-Public Use
  Company Number: JP-EISAI INC-E2020-08538-SPO-JP

PATIENT
  Age: 85 Year
  Sex: Male

DRUGS (2)
  1. ARICEPT [Suspect]
     Indication: DEMENTIA ALZHEIMER'S TYPE
     Dosage: UNKNOWN
     Route: 048
     Dates: end: 20110205
  2. ARICEPT [Suspect]
     Dosage: UNSPECIFIED OVERDOSE
     Route: 048
     Dates: start: 20110206

REACTIONS (4)
  - ACCIDENTAL OVERDOSE [None]
  - BLOOD PRESSURE DECREASED [None]
  - VOMITING [None]
  - RESPIRATORY DEPRESSION [None]
